FAERS Safety Report 24869497 (Version 2)
Quarter: 2025Q1

REPORT INFORMATION
  Report Type: Spontaneous
  Country: US (occurrence: US)
  Receive Date: 20250121
  Receipt Date: 20250123
  Transmission Date: 20250408
  Serious: Yes (Life-Threatening, Hospitalization, Other)
  Sender: PFIZER
  Company Number: US-MLMSERVICE-20250108-PI342583-00082-1

PATIENT
  Age: 68 Year
  Sex: Male

DRUGS (7)
  1. CARBOPLATIN [Suspect]
     Active Substance: CARBOPLATIN
     Indication: Lung squamous cell carcinoma stage III
     Dates: start: 202304, end: 2023
  2. CARBOPLATIN [Suspect]
     Active Substance: CARBOPLATIN
     Dates: start: 202306, end: 2023
  3. PACLITAXEL [Suspect]
     Active Substance: PACLITAXEL
     Indication: Lung squamous cell carcinoma stage III
     Dates: start: 202304, end: 2023
  4. PACLITAXEL [Suspect]
     Active Substance: PACLITAXEL
     Dates: start: 202306, end: 2023
  5. NIVOLUMAB [Suspect]
     Active Substance: NIVOLUMAB
     Indication: Lung squamous cell carcinoma stage III
     Dates: start: 202304, end: 2023
  6. NIVOLUMAB [Suspect]
     Active Substance: NIVOLUMAB
     Dates: start: 202306, end: 2023
  7. PACLITAXEL [Suspect]
     Active Substance: PACLITAXEL
     Indication: Lung squamous cell carcinoma stage III
     Dates: start: 202306, end: 2023

REACTIONS (9)
  - Acute respiratory failure [Recovering/Resolving]
  - Pulmonary fibrosis [Recovering/Resolving]
  - Nodular regenerative hyperplasia [Recovering/Resolving]
  - Portal hypertension [Recovering/Resolving]
  - Chronic hepatic failure [Recovering/Resolving]
  - Interstitial lung disease [Recovering/Resolving]
  - Hepatic cirrhosis [Recovering/Resolving]
  - Atrial fibrillation [Recovering/Resolving]
  - Hypotension [Recovering/Resolving]

NARRATIVE: CASE EVENT DATE: 20230101
